FAERS Safety Report 14507616 (Version 3)
Quarter: 2018Q3

REPORT INFORMATION
  Report Type: Spontaneous
  Country: US (occurrence: US)
  Receive Date: 20180208
  Receipt Date: 20180823
  Transmission Date: 20181010
  Serious: No
  Sender: FDA-Public Use
  Company Number: US-ACTELION-A-US2018-167035

PATIENT
  Age: 83 Year
  Sex: Female

DRUGS (13)
  1. SILDENAFIL. [Concomitant]
     Active Substance: SILDENAFIL
  2. VENTOLIN HFA [Concomitant]
     Active Substance: ALBUTEROL SULFATE
  3. FUROSEMIDE. [Concomitant]
     Active Substance: FUROSEMIDE
  4. PREDNISONE. [Concomitant]
     Active Substance: PREDNISONE
  5. SIMVASTATIN. [Concomitant]
     Active Substance: SIMVASTATIN
  6. OPSUMIT [Suspect]
     Active Substance: MACITENTAN
     Indication: PULMONARY HYPERTENSION
     Dosage: 10 MG, UNK
     Route: 048
  7. ALBUTEROL. [Concomitant]
     Active Substance: ALBUTEROL
  8. IPRATROPIUM [Concomitant]
     Active Substance: IPRATROPIUM
  9. LEVOTHYROXINE. [Concomitant]
     Active Substance: LEVOTHYROXINE
  10. ESOMEPRAZOLE [Concomitant]
     Active Substance: ESOMEPRAZOLE
  11. AMLODIPINE [Concomitant]
     Active Substance: AMLODIPINE BESYLATE
  12. CARVEDILOL. [Concomitant]
     Active Substance: CARVEDILOL
  13. KLOR?CON M10 [Concomitant]
     Active Substance: POTASSIUM CHLORIDE

REACTIONS (2)
  - Drug ineffective [Unknown]
  - Hypoacusis [Unknown]
